FAERS Safety Report 14599881 (Version 1)
Quarter: 2018Q1

REPORT INFORMATION
  Report Type: Report from Study
  Country: US (occurrence: US)
  Receive Date: 20180305
  Receipt Date: 20180305
  Transmission Date: 20180509
  Serious: Yes (Other)
  Sender: FDA-Public Use
  Company Number: US-MYLANLABS-2018M1013918

PATIENT
  Sex: Male
  Weight: 85 kg

DRUGS (39)
  1. BECLOMETASONE DIPROPIONATE [Suspect]
     Active Substance: BECLOMETHASONE DIPROPIONATE
     Indication: ACUTE GRAFT VERSUS HOST DISEASE IN INTESTINE
     Dosage: 1 ML, QID
     Route: 048
     Dates: start: 20151120
  2. URSODIOL. [Concomitant]
     Active Substance: URSODIOL
     Indication: PRODUCT USED FOR UNKNOWN INDICATION
     Dosage: UNK
     Dates: start: 20150924
  3. ONDASETRON                         /00955301/ [Concomitant]
     Active Substance: ONDANSETRON
     Indication: PRODUCT USED FOR UNKNOWN INDICATION
     Dosage: UNK
     Dates: start: 20151102, end: 20151204
  4. METOCLOPRAMIDE. [Concomitant]
     Active Substance: METOCLOPRAMIDE
     Indication: PRODUCT USED FOR UNKNOWN INDICATION
     Dosage: UNK
     Dates: start: 20151117
  5. PREDNISONE. [Suspect]
     Active Substance: PREDNISONE
     Indication: ACUTE GRAFT VERSUS HOST DISEASE IN INTESTINE
     Dosage: 80 MG, QD
     Route: 048
     Dates: start: 20151119, end: 20151201
  6. PREDNISONE. [Suspect]
     Active Substance: PREDNISONE
     Dosage: 40 MG, QD
     Dates: start: 20151227
  7. TACROLIMUS. [Suspect]
     Active Substance: TACROLIMUS
     Indication: PROPHYLAXIS AGAINST GRAFT VERSUS HOST DISEASE
     Dosage: 90 UNK UNIT, PER HOUR
     Route: 042
     Dates: start: 20151015
  8. TACROLIMUS. [Suspect]
     Active Substance: TACROLIMUS
     Indication: PROPHYLAXIS AGAINST GRAFT VERSUS HOST DISEASE
     Dosage: 2 MG, Q2H
     Route: 048
     Dates: start: 20151101
  9. CYCLOPHOSPHAMIDE. [Suspect]
     Active Substance: CYCLOPHOSPHAMIDE
     Indication: IMMUNOSUPPRESSION
     Dosage: 250 ML, QH TOTAL DAILY DOSE: 4464MG/250ML
     Route: 042
     Dates: start: 20151009, end: 20151010
  10. PANTOPRAZOLE [Concomitant]
     Active Substance: PANTOPRAZOLE
     Indication: PRODUCT USED FOR UNKNOWN INDICATION
     Dosage: UNK
     Dates: start: 20151119
  11. TACROLIMUS. [Suspect]
     Active Substance: TACROLIMUS
     Dosage: 72 UNK UNIT, PER HOUR
     Route: 042
     Dates: start: 20151022
  12. TACROLIMUS. [Suspect]
     Active Substance: TACROLIMUS
     Dosage: 1.5 MG, Q2H
     Route: 048
     Dates: start: 20151120
  13. BUSULFAN. [Suspect]
     Active Substance: BUSULFAN
     Indication: IMMUNOSUPPRESSION
     Dosage: 200 ML, QH TOTAL DAILY DOSE: 300 MG
     Route: 042
     Dates: start: 20151011, end: 20151014
  14. VALACYCLOVIR [Concomitant]
     Active Substance: VALACYCLOVIR HYDROCHLORIDE
     Indication: PRODUCT USED FOR UNKNOWN INDICATION
     Dosage: UNK
     Dates: start: 20151119
  15. OXYCODONE [Concomitant]
     Active Substance: OXYCODONE
     Indication: PRODUCT USED FOR UNKNOWN INDICATION
     Dosage: UNK
     Dates: start: 20151122
  16. DOCUSATE [Concomitant]
     Active Substance: DOCUSATE
     Indication: PRODUCT USED FOR UNKNOWN INDICATION
     Dosage: UNK
     Dates: start: 20151204
  17. PREDNISONE. [Suspect]
     Active Substance: PREDNISONE
     Dosage: 70 MG, QD
     Route: 048
     Dates: start: 20151202, end: 20151206
  18. PREDNISONE. [Suspect]
     Active Substance: PREDNISONE
     Dosage: 50 MG, QD
     Route: 048
     Dates: start: 20151217, end: 20151221
  19. METHOTREXATE. [Suspect]
     Active Substance: METHOTREXATE
     Dosage: 19 MG, ONCE
     Route: 042
     Dates: start: 20151022, end: 20151022
  20. BECLOMETASONE DIPROPIONATE [Suspect]
     Active Substance: BECLOMETHASONE DIPROPIONATE
     Dosage: 2 ML, QID
     Route: 048
     Dates: start: 20151124
  21. FLUCONAZOLE. [Concomitant]
     Active Substance: FLUCONAZOLE
     Indication: PRODUCT USED FOR UNKNOWN INDICATION
     Dosage: UNK
     Dates: start: 20151101, end: 20151118
  22. POSACONAZOLE [Concomitant]
     Active Substance: POSACONAZOLE
     Indication: PRODUCT USED FOR UNKNOWN INDICATION
     Dosage: UNK
     Dates: start: 20150919
  23. MAGNESIUM SULFATE;POTASSIUM;SODIUM CHLORIDE [Concomitant]
     Indication: PRODUCT USED FOR UNKNOWN INDICATION
     Dosage: UNK
     Dates: start: 20151102
  24. ACYCLOVIR                          /00587301/ [Concomitant]
     Active Substance: ACYCLOVIR
     Indication: PRODUCT USED FOR UNKNOWN INDICATION
     Dosage: UNK
     Dates: start: 20151031, end: 20151118
  25. HYDROCORTISONE. [Concomitant]
     Active Substance: HYDROCORTISONE
     Indication: PRODUCT USED FOR UNKNOWN INDICATION
     Dosage: UNK
     Dates: start: 20151021
  26. SULFAMETHOXAZOLE W/TRIMETHOPRIM [Concomitant]
     Active Substance: SULFAMETHOXAZOLE\TRIMETHOPRIM
     Indication: PRODUCT USED FOR UNKNOWN INDICATION
     Dosage: UNK
     Dates: start: 20151110
  27. SENNA ALEXANDRINA [Concomitant]
     Active Substance: SENNA LEAF
     Indication: PRODUCT USED FOR UNKNOWN INDICATION
     Dosage: UNK
     Dates: start: 20151204
  28. METHOTREXATE. [Suspect]
     Active Substance: METHOTREXATE
     Dosage: 19 MG, ONCE
     Route: 042
     Dates: start: 20151027, end: 20151027
  29. PREDNISONE. [Suspect]
     Active Substance: PREDNISONE
     Dosage: 65 MG, QD
     Dates: start: 20151207, end: 20151211
  30. PREDNISONE. [Suspect]
     Active Substance: PREDNISONE
     Dosage: 45 MG, QD
     Route: 048
     Dates: start: 20151222, end: 20151226
  31. CLOTRIMAZOLE. [Concomitant]
     Active Substance: CLOTRIMAZOLE
     Indication: PRODUCT USED FOR UNKNOWN INDICATION
     Dosage: UNK
     Dates: start: 20151102, end: 20151117
  32. PREDNISONE. [Suspect]
     Active Substance: PREDNISONE
     Dosage: 55 MG, QD
     Route: 048
     Dates: start: 20151212, end: 20151216
  33. TACROLIMUS. [Suspect]
     Active Substance: TACROLIMUS
     Dosage: 54 UNK UNIT, PER HOUR
     Route: 042
     Dates: start: 20151025
  34. METHOTREXATE. [Suspect]
     Active Substance: METHOTREXATE
     Indication: PROPHYLAXIS AGAINST GRAFT VERSUS HOST DISEASE
     Dosage: 19 MG, ONCE
     Route: 042
     Dates: start: 20151017, end: 20151017
  35. METHOTREXATE. [Suspect]
     Active Substance: METHOTREXATE
     Dosage: 19 MG, ONCE
     Route: 042
     Dates: start: 20151019, end: 20151019
  36. DIPHENHYDRAMINE. [Concomitant]
     Active Substance: DIPHENHYDRAMINE
     Indication: PRODUCT USED FOR UNKNOWN INDICATION
     Dosage: UNK
     Dates: start: 20151103
  37. LORAZEPAM. [Concomitant]
     Active Substance: LORAZEPAM
     Indication: PRODUCT USED FOR UNKNOWN INDICATION
     Dosage: UNK
     Dates: start: 20151102
  38. POTASSIUM CHLORIDE. [Concomitant]
     Active Substance: POTASSIUM CHLORIDE
     Indication: PRODUCT USED FOR UNKNOWN INDICATION
     Dosage: UNK
     Dates: start: 20151124
  39. MAGNESIUM OXIDE. [Concomitant]
     Active Substance: MAGNESIUM OXIDE
     Indication: PRODUCT USED FOR UNKNOWN INDICATION
     Dosage: UNK
     Dates: start: 20151201

REACTIONS (1)
  - Malignant melanoma [Recovered/Resolved]
